FAERS Safety Report 7774293-7 (Version None)
Quarter: 2011Q3

REPORT INFORMATION
  Report Type: 
  Country: None (occurrence: None)
  Receive Date: 20110920
  Receipt Date: 20110909
  Transmission Date: 20111222
  Serious: Yes (Other)
  Sender: FDA-Public Use
  Company Number: B0747671A

PATIENT
  Age: 16 Year
  Sex: Female

DRUGS (1)
  1. BECLOMETHASONE DIPROPIONATE [Suspect]
     Indication: ASTHMA
     Dosage: TWICE PER DAY/INHALED
     Route: 055

REACTIONS (7)
  - ENERGY INCREASED [None]
  - GRANDIOSITY [None]
  - MANIA [None]
  - TACHYPHRENIA [None]
  - IMPULSIVE BEHAVIOUR [None]
  - PRESSURE OF SPEECH [None]
  - INSOMNIA [None]
